FAERS Safety Report 17591221 (Version 1)
Quarter: 2020Q1

REPORT INFORMATION
  Report Type: Spontaneous
  Country: US (occurrence: US)
  Receive Date: 20200327
  Receipt Date: 20200327
  Transmission Date: 20200409
  Serious: Yes (Other)
  Sender: FDA-Public Use
  Company Number: US-ELI_LILLY_AND_COMPANY-US202003008162

PATIENT
  Sex: Female

DRUGS (2)
  1. HUMALOG [Suspect]
     Active Substance: INSULIN LISPRO
     Indication: TYPE 2 DIABETES MELLITUS
     Dosage: UNK UNK, UNKNOWN
     Route: 058
     Dates: start: 2010
  2. HUMALOG [Suspect]
     Active Substance: INSULIN LISPRO
     Dosage: 30 U, UNKNOWN
     Route: 058
     Dates: start: 2010

REACTIONS (7)
  - Atrial fibrillation [Unknown]
  - Pleural effusion [Unknown]
  - Influenza [Unknown]
  - Visual impairment [Unknown]
  - Limb injury [Unknown]
  - Blood glucose increased [Unknown]
  - Accidental underdose [Unknown]
